FAERS Safety Report 16011146 (Version 2)
Quarter: 2019Q2

REPORT INFORMATION
  Report Type: Report from Study
  Country: CL (occurrence: CL)
  Receive Date: 20190227
  Receipt Date: 20190408
  Transmission Date: 20190711
  Serious: Yes (Hospitalization, Other)
  Sender: FDA-Public Use
  Company Number: CL-UCBSA-2018040187

PATIENT
  Age: 1 Year
  Sex: Male

DRUGS (6)
  1. LACOSAMIDE. [Suspect]
     Active Substance: LACOSAMIDE
     Dosage: 50 MG, 2X/DAY (BID)
     Route: 048
     Dates: end: 20190220
  2. LACOSAMIDE. [Suspect]
     Active Substance: LACOSAMIDE
     Indication: EPILEPSY
     Dosage: 50 MG, 2X/DAY (BID)
     Route: 048
     Dates: start: 20180713
  3. CHAMOMILE [Concomitant]
     Active Substance: CHAMOMILE
     Indication: TOOTH DISORDER
     Dosage: UNK
     Route: 048
  4. LACOSAMIDE. [Suspect]
     Active Substance: LACOSAMIDE
     Dosage: 25 MG IN MORNING AND 50 MG IN THE AFTERNOON, 2X/DAY (BID)
     Route: 048
     Dates: start: 20190221
  5. PHENOBARBITAL. [Concomitant]
     Active Substance: PHENOBARBITAL
     Indication: EPILEPSY
     Dosage: 45 MG DAILY
     Route: 048
     Dates: end: 201812
  6. OXCARBAZEPINE. [Concomitant]
     Active Substance: OXCARBAZEPINE
     Indication: EPILEPSY
     Dosage: 2.5 ML, ONCE DAILY (QD)
     Route: 048
     Dates: end: 20190221

REACTIONS (7)
  - Headache [Unknown]
  - Rash [Recovered/Resolved]
  - Off label use [Unknown]
  - Fall [Recovered/Resolved]
  - Irritability [Recovered/Resolved]
  - Petit mal epilepsy [Recovered/Resolved]
  - Abnormal behaviour [Unknown]

NARRATIVE: CASE EVENT DATE: 2018
